FAERS Safety Report 20002368 (Version 31)
Quarter: 2025Q3

REPORT INFORMATION
  Report Type: Spontaneous
  Country: US (occurrence: US)
  Receive Date: 20211027
  Receipt Date: 20250702
  Transmission Date: 20251020
  Serious: Yes (Other)
  Sender: PFIZER
  Company Number: US-PFIZER INC-2021665252

PATIENT
  Age: 78 Year
  Sex: Female
  Weight: 48.98 kg

DRUGS (7)
  1. EUCRISA [Suspect]
     Active Substance: CRISABOROLE
     Indication: Eczema
     Dosage: 1 DF, 2X/DAY (APPLY A SMALL AMOUNT TO AFFECTED AREA TWICE DAILY)
     Route: 061
  2. EUCRISA [Suspect]
     Active Substance: CRISABOROLE
     Indication: Pruritus
     Dosage: 100 MG, 2X/DAY
     Route: 061
  3. EUCRISA [Suspect]
     Active Substance: CRISABOROLE
     Indication: Rash
     Dosage: 1 DF, 2X/DAY [APPLY 0.5 -1 GRAM TO AFFECTED AREA TWICE A DAY AS NEEDED]
     Route: 061
  4. EUCRISA [Suspect]
     Active Substance: CRISABOROLE
     Indication: Dermatitis atopic
  5. EUCRISA [Suspect]
     Active Substance: CRISABOROLE
     Indication: Dermatitis contact
     Dosage: UNK, 2X/DAY [APPLY TO INFECTED AREAS]
     Route: 061
  6. TACROLIMUS [Concomitant]
     Active Substance: TACROLIMUS
     Indication: Rash
  7. TACROLIMUS [Concomitant]
     Active Substance: TACROLIMUS
     Indication: Pruritus

REACTIONS (11)
  - Pneumonia [Recovered/Resolved]
  - Therapeutic response unexpected [Unknown]
  - Off label use [Unknown]
  - Off label use [Unknown]
  - Intentional product misuse [Unknown]
  - Product prescribing error [Unknown]
  - Product dispensing error [Unknown]
  - Condition aggravated [Recovered/Resolved]
  - Staphylococcal skin infection [Recovered/Resolved]
  - COVID-19 [Unknown]
  - Immune system disorder [Unknown]
